FAERS Safety Report 9347989 (Version 1)
Quarter: 2013Q2

REPORT INFORMATION
  Report Type: Spontaneous
  Country: US (occurrence: None)
  Receive Date: 20130612
  Receipt Date: 20130612
  Transmission Date: 20140414
  Serious: Yes (Disabling, Other)
  Sender: FDA-Public Use
  Company Number: None

PATIENT
  Age: 55 Year
  Sex: Female
  Weight: 54.43 kg

DRUGS (7)
  1. ABILIFY [Suspect]
     Indication: DRUG THERAPY
     Dosage: NOV 28-31?10MG?I HAD ABOUT 4 PILLS?ONCE A DAY?BY MOUTH
     Route: 048
  2. SYNTHROID [Concomitant]
  3. LITHIUM (TIME RELEASE) [Concomitant]
  4. KLONOPIN [Concomitant]
  5. BABY ASPIRIN [Concomitant]
  6. CITRACEL [Concomitant]
  7. CENTRUM 55 + VIATAMINS [Concomitant]

REACTIONS (2)
  - Joint lock [None]
  - Product quality issue [None]
